FAERS Safety Report 5947317-7 (Version None)
Quarter: 2008Q4

REPORT INFORMATION
  Report Type: 
  Country: None (occurrence: None)
  Receive Date: 20081106
  Receipt Date: 20081031
  Transmission Date: 20090506
  Serious: Yes (Death)
  Sender: FDA-Public Use
  Company Number: SPV1-2008-02386

PATIENT
  Age: 18 Year
  Sex: Male

DRUGS (1)
  1. ELAPRASE [Suspect]
     Indication: MUCOPOLYSACCHARIDOSIS II
     Dosage: 0.5 MG/KG, 1X/WEEK, IV DRIP
     Route: 041
     Dates: start: 20070806

REACTIONS (2)
  - ANEURYSM [None]
  - HAEMORRHAGE [None]
